FAERS Safety Report 12036751 (Version 2)
Quarter: 2016Q1

REPORT INFORMATION
  Report Type: Report from Study
  Country: US (occurrence: US)
  Receive Date: 20160208
  Receipt Date: 20160317
  Transmission Date: 20160526
  Serious: Yes (Other)
  Sender: FDA-Public Use
  Company Number: US-ROCHE-1704134

PATIENT
  Sex: Female

DRUGS (1)
  1. NUTROPIN AQ [Suspect]
     Active Substance: SOMATROPIN
     Indication: TURNER^S SYNDROME
     Dosage: NUSPIN 10 MG PEN
     Route: 058

REACTIONS (5)
  - Middle ear effusion [Unknown]
  - Otitis media acute [Unknown]
  - Headache [Unknown]
  - Cardiac murmur [Unknown]
  - Snoring [Unknown]
